FAERS Safety Report 6920068-8 (Version None)
Quarter: 2010Q3

REPORT INFORMATION
  Report Type: 
  Country: None (occurrence: None)
  Receive Date: 20100811
  Receipt Date: 20100730
  Transmission Date: 20110219
  Serious: Yes (Other)
  Sender: FDA-Public Use
  Company Number: US-PFIZER INC-2010096001

PATIENT
  Sex: Female

DRUGS (3)
  1. LYRICA [Suspect]
     Dosage: UNK
  2. GLEEVEC [Suspect]
     Dosage: UNK
     Dates: start: 20060516, end: 20100104
  3. SPRYCEL [Suspect]
     Dosage: UNK
     Dates: start: 20100104

REACTIONS (4)
  - BLOOD CREATINE PHOSPHOKINASE INCREASED [None]
  - HEADACHE [None]
  - MYOPATHY [None]
  - RASH [None]
